FAERS Safety Report 10833731 (Version 2)
Quarter: 2015Q1

REPORT INFORMATION
  Report Type: Spontaneous
  Country: US (occurrence: US)
  Receive Date: 20150219
  Receipt Date: 20150319
  Transmission Date: 20150721
  Serious: Yes (Hospitalization)
  Sender: FDA-Public Use
  Company Number: US-INCYTE CORPORATION-2015IN000257

PATIENT
  Sex: Female

DRUGS (16)
  1. ONDANSETRON [Concomitant]
     Active Substance: ONDANSETRON
  2. JAKAFI [Suspect]
     Active Substance: RUXOLITINIB
     Indication: MYELOFIBROSIS
     Dosage: 20 MG, BID
     Route: 048
  3. IRON [Concomitant]
     Active Substance: IRON
     Dosage: 65 MG, UNK
  4. ENOXAPARIN [Concomitant]
     Active Substance: ENOXAPARIN
  5. AMILORIDE [Concomitant]
     Active Substance: AMILORIDE
  6. PROPRANOLOL [Concomitant]
     Active Substance: PROPRANOLOL\PROPRANOLOL HYDROCHLORIDE
  7. TRAMADOL [Concomitant]
     Active Substance: TRAMADOL
  8. SINGULAIR [Concomitant]
     Active Substance: MONTELUKAST SODIUM
  9. PRILOSEC [Concomitant]
     Active Substance: OMEPRAZOLE MAGNESIUM
  10. CIPROFLOXACIN. [Concomitant]
     Active Substance: CIPROFLOXACIN
  11. ALLOPURINOL. [Concomitant]
     Active Substance: ALLOPURINOL
  12. FUROSEMIDE. [Concomitant]
     Active Substance: FUROSEMIDE
  13. SINGULAIR [Concomitant]
     Active Substance: MONTELUKAST SODIUM
  14. JAKAFI [Suspect]
     Active Substance: RUXOLITINIB
     Dosage: 20 MG, QD
     Route: 048
     Dates: start: 201406
  15. OSCAL D [Concomitant]
     Active Substance: CALCIUM CARBONATE\CHOLECALCIFEROL
  16. AMLODIPINE [Concomitant]
     Active Substance: AMLODIPINE BESYLATE

REACTIONS (13)
  - Fatigue [Unknown]
  - Anaemia [Unknown]
  - Peritonitis [Unknown]
  - Vomiting [Unknown]
  - Abdominal pain [Unknown]
  - Splenomegaly [Unknown]
  - Hepatomegaly [Unknown]
  - Varices oesophageal [Unknown]
  - Nausea [Unknown]
  - Bone pain [Unknown]
  - Platelet count decreased [Unknown]
  - Dyspnoea [Unknown]
  - Alopecia [Unknown]

NARRATIVE: CASE EVENT DATE: 2014
